FAERS Safety Report 9615782 (Version 2)
Quarter: 2013Q4

REPORT INFORMATION
  Report Type: Spontaneous
  Country: US (occurrence: US)
  Receive Date: 20131011
  Receipt Date: 20131011
  Transmission Date: 20140711
  Serious: Yes (Other)
  Sender: FDA-Public Use
  Company Number: US-NAPPMUNDI-USA-2013-0098596

PATIENT
  Age: 24 Year
  Sex: Male
  Weight: 90.25 kg

DRUGS (4)
  1. BUTRANS [Suspect]
     Indication: PAIN
     Dosage: 10 MCG/HR, WEEKLY
     Route: 062
     Dates: start: 20130117, end: 20130127
  2. PERCOCET                           /00867901/ [Concomitant]
     Indication: PAIN
     Dosage: 1 TABLET, Q6H
     Route: 048
     Dates: start: 20130108
  3. CYMBALTA [Concomitant]
     Indication: DEPRESSION
     Dosage: 60 MG, DAILY
     Route: 048
     Dates: start: 20120719
  4. CYMBALTA [Concomitant]
     Indication: PAIN

REACTIONS (2)
  - Chest pain [Not Recovered/Not Resolved]
  - Dizziness [Unknown]
